FAERS Safety Report 13113093 (Version 1)
Quarter: 2017Q1

REPORT INFORMATION
  Report Type: Spontaneous
  Country: US (occurrence: US)
  Receive Date: 20170112
  Receipt Date: 20170112
  Transmission Date: 20170428
  Serious: Yes (Death, Life-Threatening, Hospitalization, Disabling, Other)
  Sender: FDA-Public Use
  Company Number: None

PATIENT
  Age: 85 Year
  Sex: Female
  Weight: 47.25 kg

DRUGS (1)
  1. AMIADARONE HCL [Suspect]
     Active Substance: AMIODARONE HYDROCHLORIDE
     Indication: ATRIAL FIBRILLATION
     Route: 048
     Dates: start: 20160909, end: 20161030

REACTIONS (8)
  - Cardiac failure [None]
  - Chemical injury [None]
  - General physical health deterioration [None]
  - Cardiac arrest [None]
  - Malaise [None]
  - Poor peripheral circulation [None]
  - Respiratory failure [None]
  - Hyperthyroidism [None]

NARRATIVE: CASE EVENT DATE: 20160909
